FAERS Safety Report 4271329-5 (Version None)
Quarter: 2004Q1

REPORT INFORMATION
  Report Type: 
  Country: None (occurrence: None)
  Receive Date: 20040114
  Receipt Date: 20040114
  Transmission Date: 20041129
  Serious: No
  Sender: FDA-Public Use
  Company Number: None

PATIENT
  Age: 73 Year
  Sex: Male
  Weight: 83.9154 kg

DRUGS (2)
  1. TERAZOSIN HCL [Suspect]
     Indication: DYSURIA
     Dosage: 1 CAP BY MOUTH AT BEDTIME
     Route: 048
     Dates: start: 20030824, end: 20030901
  2. TERAZOSIN HCL [Suspect]
     Indication: DYSURIA

REACTIONS (3)
  - OEDEMA PERIPHERAL [None]
  - PRURITUS [None]
  - SKIN BLEEDING [None]
